FAERS Safety Report 20233542 (Version 1)
Quarter: 2021Q4

REPORT INFORMATION
  Report Type: Spontaneous
  Country: US (occurrence: US)
  Receive Date: 20211227
  Receipt Date: 20211227
  Transmission Date: 20220303
  Serious: Yes (Hospitalization, Other)
  Sender: FDA-Public Use
  Company Number: US-GLAXOSMITHKLINE-US2014GSK018171

PATIENT
  Age: 17 Year
  Sex: Male

DRUGS (1)
  1. IBUPROFEN [Suspect]
     Active Substance: IBUPROFEN
     Indication: Product used for unknown indication
     Dosage: 200 MG, UNK
     Route: 048

REACTIONS (5)
  - Atrial fibrillation [Recovered/Resolved]
  - Depression [Recovered/Resolved]
  - Heart rate irregular [Recovered/Resolved]
  - Overdose [Recovered/Resolved]
  - Toxicity to various agents [Unknown]
